FAERS Safety Report 25597940 (Version 1)
Quarter: 2025Q3

REPORT INFORMATION
  Report Type: Spontaneous
  Country: EU (occurrence: EU)
  Receive Date: 20250723
  Receipt Date: 20250723
  Transmission Date: 20251021
  Serious: Yes (Hospitalization)
  Sender: MYLAN
  Company Number: None

PATIENT
  Age: 53 Year
  Sex: Female

DRUGS (6)
  1. EFFEXOR [Suspect]
     Active Substance: VENLAFAXINE HYDROCHLORIDE
     Indication: Schizoaffective disorder
     Dosage: 1 DOSAGE FORM, QD
  2. ZYPADHERA [Suspect]
     Active Substance: OLANZAPINE PAMOATE
     Indication: Schizoaffective disorder
     Dosage: 1 DF, Q3W (POWDER AND SOLVENT FOR PROLONGED-RELEASE SUSPENSION FOR INJECTION)
  3. ZYPREXA [Suspect]
     Active Substance: OLANZAPINE
     Indication: Schizoaffective disorder
     Dosage: 1 DOSAGE FORM, QD
  4. LORAZEPAM [Suspect]
     Active Substance: LORAZEPAM
     Indication: Schizoaffective disorder
     Dosage: 3.5 DOSAGE FORM, QD (1 MORNING, 1/2 NOON, 2 AT BEDTIME),SCORED TABLET
  5. TERALITHE [Suspect]
     Active Substance: LITHIUM CARBONATE
     Indication: Schizoaffective disorder
     Dosage: 1200 MILLIGRAM, QD
  6. TERALITHE [Suspect]
     Active Substance: LITHIUM CARBONATE
     Dosage: 800 MILLIGRAM, QD,PROLONGED-RELEASE SCORED TABLET

REACTIONS (1)
  - Restless legs syndrome [Recovering/Resolving]
